APPROVED DRUG PRODUCT: RAPIVAB
Active Ingredient: PERAMIVIR
Strength: 200MG/20ML (10MG/ML)
Dosage Form/Route: SOLUTION;INTRAVENOUS
Application: N206426 | Product #001
Applicant: BIOCRYST PHARMACEUTICALS INC
Approved: Dec 19, 2014 | RLD: Yes | RS: Yes | Type: RX

PATENTS:
Patent 10391075 | Expires: Feb 12, 2027
Patent 8778997 | Expires: May 7, 2027
Patent 8778997 | Expires: May 7, 2027
Patent 10391075 | Expires: Feb 12, 2027
Patent 8778997 | Expires: May 7, 2027